FAERS Safety Report 20533604 (Version 2)
Quarter: 2022Q1

REPORT INFORMATION
  Report Type: Report from Study
  Country: EG (occurrence: EG)
  Receive Date: 20220301
  Receipt Date: 20220309
  Transmission Date: 20220423
  Serious: Yes (Other)
  Sender: FDA-Public Use
  Company Number: CA-NOVARTISPH-NVSC2022EG046317

PATIENT
  Age: 49 Year
  Sex: Female

DRUGS (7)
  1. COSENTYX [Suspect]
     Active Substance: SECUKINUMAB
     Indication: Psoriatic arthropathy
     Dosage: 150 MG, BIW, THEN 150 MG, QMO
     Route: 058
     Dates: start: 202109, end: 202110
  2. COSENTYX [Suspect]
     Active Substance: SECUKINUMAB
     Dosage: 150 MG, BIW
     Route: 065
     Dates: start: 202111
  3. DICLOFENAC SODIUM [Concomitant]
     Active Substance: DICLOFENAC SODIUM
     Indication: Antibiotic therapy
     Dosage: 1 DOSAGE FORM, QD (DAILY EVERY 12HRS FOR 5 DAYS)
     Route: 048
     Dates: start: 20211119
  4. BISOPROLOL FUMARATE [Concomitant]
     Active Substance: BISOPROLOL FUMARATE
     Indication: Product used for unknown indication
     Dosage: 1 DOSAGE FORM, BID (MORNING AND NIGHT) STARTED 2 MONTHS AGO
     Route: 048
  5. CIPRALEX [Concomitant]
     Active Substance: ESCITALOPRAM OXALATE
     Indication: Antidepressant therapy
     Dosage: 1 DOSAGE FORM, QD
     Route: 048
     Dates: start: 202109
  6. CIPRALEX [Concomitant]
     Active Substance: ESCITALOPRAM OXALATE
     Dosage: 0.5 DOSAGE FORM, QD
     Route: 048
  7. CELEBREX [Concomitant]
     Active Substance: CELECOXIB
     Indication: Product used for unknown indication
     Dosage: UNK
     Route: 065

REACTIONS (19)
  - Psoriatic arthropathy [Not Recovered/Not Resolved]
  - Dysarthria [Recovering/Resolving]
  - Hypokinesia [Recovering/Resolving]
  - Joint injury [Recovering/Resolving]
  - Arthralgia [Recovering/Resolving]
  - Fall [Recovering/Resolving]
  - Tongue abscess [Recovering/Resolving]
  - Dysphagia [Recovering/Resolving]
  - Urinary tract infection [Recovered/Resolved]
  - Pulmonary oedema [Recovered/Resolved]
  - Chest discomfort [Recovered/Resolved]
  - Chest pain [Recovered/Resolved]
  - Chest wall cyst [Recovered/Resolved]
  - Blood pressure increased [Not Recovered/Not Resolved]
  - Fatigue [Not Recovered/Not Resolved]
  - Fibromyalgia [Unknown]
  - Insomnia [Not Recovered/Not Resolved]
  - Off label use [Recovered/Resolved]
  - Drug ineffective [Unknown]

NARRATIVE: CASE EVENT DATE: 20210901
